FAERS Safety Report 25793568 (Version 2)
Quarter: 2025Q3

REPORT INFORMATION
  Report Type: Report from Study
  Country: US (occurrence: US)
  Receive Date: 20250912
  Receipt Date: 20250929
  Transmission Date: 20251021
  Serious: Yes (Hospitalization, Other)
  Sender: TAKEDA
  Company Number: US-TAKEDA-2025TUS078895

PATIENT
  Sex: Male
  Weight: 172 kg

DRUGS (13)
  1. HUMAN IMMUNOGLOBULIN G [Suspect]
     Active Substance: HUMAN IMMUNOGLOBULIN G
     Indication: Immunodeficiency common variable
     Dosage: 10 GRAM, 1/WEEK
  2. EPINEPHRINE [Concomitant]
     Active Substance: EPINEPHRINE
  3. ACETAMINOPHEN [Concomitant]
     Active Substance: ACETAMINOPHEN
  4. ALFUZOSIN HYDROCHLORIDE [Concomitant]
     Active Substance: ALFUZOSIN HYDROCHLORIDE
  5. FOLIC ACID [Concomitant]
     Active Substance: FOLIC ACID
  6. SULFASALAZINE [Concomitant]
     Active Substance: SULFASALAZINE
  7. DUTASTERIDE [Concomitant]
     Active Substance: DUTASTERIDE
  8. DOXYCYCLINE HYCLATE [Concomitant]
     Active Substance: DOXYCYCLINE HYCLATE
  9. LIDOCAINE [Concomitant]
     Active Substance: LIDOCAINE
  10. METHOTREXATE [Concomitant]
     Active Substance: METHOTREXATE
  11. PREDNISONE [Concomitant]
     Active Substance: PREDNISONE
  12. DIPHENHYDRAMINE HYDROCHLORIDE [Concomitant]
     Active Substance: DIPHENHYDRAMINE HYDROCHLORIDE
  13. BENICAR [Concomitant]
     Active Substance: OLMESARTAN MEDOXOMIL

REACTIONS (2)
  - Myocardial infarction [Unknown]
  - Influenza [Unknown]
